FAERS Safety Report 21309386 (Version 1)
Quarter: 2022Q3

REPORT INFORMATION
  Report Type: Spontaneous
  Country: US (occurrence: US)
  Receive Date: 20220908
  Receipt Date: 20220908
  Transmission Date: 20221027
  Serious: No
  Sender: FDA-Public Use
  Company Number: US-BRAINTREE LABORATORIES, INC.-2022BTE00031

PATIENT
  Sex: Female

DRUGS (6)
  1. SUPREP BOWEL PREP [Suspect]
     Active Substance: MAGNESIUM SULFATE\POTASSIUM SULFATE\SODIUM SULFATE
     Indication: Colonoscopy
     Dosage: 2 X 6 OZ. BOTTLE, 1X
     Route: 048
     Dates: start: 20220112, end: 20220113
  2. UNSPECIFIED MULTIVITAMINS [Concomitant]
  3. ZINC [Concomitant]
     Active Substance: ZINC
  4. ANTIHISTAMINES NOS [Concomitant]
     Active Substance: ANTIHISTAMINES NOS
  5. UNSPECIFIED MEDICATION FOR GOOD INTESTINES [Concomitant]
  6. GAS-X [Concomitant]
     Active Substance: DIMETHICONE
     Dosage: 2 TABLETS, TWICE
     Dates: start: 20220113, end: 20220113

REACTIONS (4)
  - Drug ineffective [Recovered/Resolved]
  - Flatulence [Recovered/Resolved]
  - Pruritus [Recovered/Resolved]
  - Wrong technique in product usage process [Recovered/Resolved]

NARRATIVE: CASE EVENT DATE: 20220101
